FAERS Safety Report 16731587 (Version 1)
Quarter: 2019Q3

REPORT INFORMATION
  Report Type: Spontaneous
  Country: US (occurrence: US)
  Receive Date: 20190822
  Receipt Date: 20190822
  Transmission Date: 20191005
  Serious: No
  Sender: FDA-Public Use
  Company Number: US-SA-2019SA233932

PATIENT
  Age: 15 Year
  Sex: Female

DRUGS (6)
  1. DUPIXENT [Suspect]
     Active Substance: DUPILUMAB
     Indication: PSORIASIS
     Dosage: 200 MG, QOW
     Route: 058
     Dates: start: 20190805
  2. EUCRISA [Concomitant]
     Active Substance: CRISABOROLE
  3. BENZONATATE. [Concomitant]
     Active Substance: BENZONATATE
  4. DUPIXENT [Suspect]
     Active Substance: DUPILUMAB
     Indication: DERMATITIS ATOPIC
  5. MOMETASONE [Concomitant]
     Active Substance: MOMETASONE
  6. DUPIXENT [Suspect]
     Active Substance: DUPILUMAB
     Indication: SKIN PAPILLOMA

REACTIONS (2)
  - Product use in unapproved indication [Unknown]
  - Eye irritation [Recovering/Resolving]

NARRATIVE: CASE EVENT DATE: 201908
